FAERS Safety Report 5143330-0 (Version None)
Quarter: 2006Q4

REPORT INFORMATION
  Report Type: 
  Country: None (occurrence: None)
  Receive Date: 20061103
  Receipt Date: 20061025
  Transmission Date: 20070319
  Serious: Yes (Hospitalization)
  Sender: FDA-Public Use
  Company Number: FR-ROCHE-468855

PATIENT
  Age: 64 Year
  Sex: Male
  Weight: 78 kg

DRUGS (5)
  1. CELLCEPT [Suspect]
     Route: 048
     Dates: start: 20050120
  2. CORTANCYL [Suspect]
     Route: 048
     Dates: start: 20050120
  3. RENITEC [Concomitant]
     Indication: ESSENTIAL HYPERTENSION
     Route: 048
  4. ESIDRIX [Concomitant]
     Indication: ESSENTIAL HYPERTENSION
     Route: 048
  5. ATENOLOL [Concomitant]
     Indication: ESSENTIAL HYPERTENSION
     Dosage: DOSE WAS DECREASED IN APRIL 2005.
     Route: 048

REACTIONS (3)
  - DISEASE PROGRESSION [None]
  - HYPERGLYCAEMIA [None]
  - HYPERTRIGLYCERIDAEMIA [None]
